FAERS Safety Report 20432808 (Version 1)
Quarter: 2022Q1

REPORT INFORMATION
  Report Type: Spontaneous
  Country: HR (occurrence: HR)
  Receive Date: 20220205
  Receipt Date: 20220205
  Transmission Date: 20220423
  Serious: Yes (Other)
  Sender: FDA-Public Use
  Company Number: HR-PFIZER INC-202101512856

PATIENT
  Age: 28 Year
  Sex: Male

DRUGS (3)
  1. ENBREL [Suspect]
     Active Substance: ETANERCEPT
     Indication: Ankylosing spondylitis
     Dosage: 50 MILLIGRAM
     Route: 058
     Dates: start: 20080317
  2. ENBREL [Suspect]
     Active Substance: ETANERCEPT
     Dosage: 50 MG  EVERY OTHER WEEK OR AS NEEDED
     Route: 058
     Dates: end: 201207
  3. ENBREL [Suspect]
     Active Substance: ETANERCEPT
     Dosage: 50 MG  EVERY OTHER WEEK OR AS NEEDED
     Route: 058
     Dates: end: 202003

REACTIONS (6)
  - Fall [Unknown]
  - Femur fracture [Unknown]
  - Arteriosclerosis [Unknown]
  - Spinal pain [Unknown]
  - Pyrexia [Unknown]
  - Off label use [Unknown]

NARRATIVE: CASE EVENT DATE: 20111001
